FAERS Safety Report 11763055 (Version 1)
Quarter: 2015Q4

REPORT INFORMATION
  Report Type: Spontaneous
  Country: US (occurrence: US)
  Receive Date: 20151120
  Receipt Date: 20151120
  Transmission Date: 20160304
  Serious: No
  Sender: FDA-Public Use
  Company Number: US-ELI_LILLY_AND_COMPANY-US201302008860

PATIENT
  Age: 73 Year
  Sex: Female

DRUGS (1)
  1. FORTEO [Suspect]
     Active Substance: TERIPARATIDE
     Indication: OSTEOPOROSIS
     Dosage: 20 UG, QD
     Dates: start: 20130115, end: 20130129

REACTIONS (6)
  - Nasopharyngitis [Unknown]
  - Intentional product misuse [Unknown]
  - Influenza like illness [Unknown]
  - Hypersensitivity [Unknown]
  - Disorientation [Unknown]
  - Confusional state [Unknown]

NARRATIVE: CASE EVENT DATE: 20130129
